FAERS Safety Report 8811104 (Version 1)
Quarter: 2012Q4

REPORT INFORMATION
  Report Type: Spontaneous
  Country: US (occurrence: None)
  Receive Date: 20120925
  Receipt Date: 20120925
  Transmission Date: 20130627
  Serious: No
  Sender: FDA-Public Use
  Company Number: None

PATIENT
  Age: 72 Year
  Sex: Female
  Weight: 71.22 kg

DRUGS (1)
  1. PROLIA [Suspect]
     Dosage: 1 needle every 10 wks
     Dates: start: 20120921

REACTIONS (2)
  - Pruritus [None]
  - Feeling abnormal [None]
